FAERS Safety Report 7607963-1 (Version None)
Quarter: 2011Q3

REPORT INFORMATION
  Report Type: 
  Country: None (occurrence: None)
  Receive Date: 20110714
  Receipt Date: 20110711
  Transmission Date: 20111222
  Serious: No
  Sender: FDA-Public Use
  Company Number: US-PFIZER INC-2011104923

PATIENT
  Sex: Female
  Weight: 88 kg

DRUGS (7)
  1. PRISTIQ [Suspect]
     Indication: ANXIETY
     Dosage: 50 MG, 1X/DAY
     Route: 048
     Dates: start: 20110503, end: 20110509
  2. SEROQUEL [Concomitant]
     Dosage: 25 MG, 1X/DAY
  3. ROZEREM [Concomitant]
     Dosage: 4 MG, EVERY BEDTIME
  4. SYNTHROID [Concomitant]
     Dosage: 125 MG, 1X/DAY
  5. XANAX [Concomitant]
     Dosage: 0.5 MG, EVERY BEDTIME
  6. PRISTIQ [Suspect]
     Indication: DEPRESSION
  7. ZANAFLEX [Concomitant]
     Dosage: 8 MG, EVERY BEDTIME

REACTIONS (6)
  - ASTHENIA [None]
  - NAUSEA [None]
  - RESTLESSNESS [None]
  - FATIGUE [None]
  - MUSCULAR WEAKNESS [None]
  - HEAD DISCOMFORT [None]
